FAERS Safety Report 14228508 (Version 1)
Quarter: 2017Q4

REPORT INFORMATION
  Report Type: Spontaneous
  Country: US (occurrence: US)
  Receive Date: 20171128
  Receipt Date: 20171128
  Transmission Date: 20180321
  Serious: No
  Sender: FDA-Public Use
  Company Number: US-SHIRE-US201728748

PATIENT
  Age: 7 Year
  Sex: Male

DRUGS (1)
  1. VYVANSE [Suspect]
     Active Substance: LISDEXAMFETAMINE DIMESYLATE
     Indication: ATTENTION DEFICIT/HYPERACTIVITY DISORDER
     Dosage: 30 MG, 1X/DAY:QD(EXCLUDING WEEKENDS)
     Route: 048
     Dates: start: 20171023

REACTIONS (6)
  - Tremor [Unknown]
  - Throat clearing [Unknown]
  - Nasal flaring [Unknown]
  - Tic [Unknown]
  - Muscle twitching [Unknown]
  - Corneal reflex decreased [Unknown]
